FAERS Safety Report 6648378-2 (Version None)
Quarter: 2010Q1

REPORT INFORMATION
  Report Type: 
  Country: None (occurrence: None)
  Receive Date: 20100324
  Receipt Date: 20100310
  Transmission Date: 20100710
  Serious: Yes (Hospitalization)
  Sender: FDA-Public Use
  Company Number: JP-ELI_LILLY_AND_COMPANY-JP201003001414

PATIENT
  Sex: Female
  Weight: 50 kg

DRUGS (9)
  1. EVISTA [Suspect]
     Indication: OSTEOPOROSIS
     Dosage: 60 MG, DAILY (1/D)
     Route: 048
     Dates: end: 20100225
  2. ROCALTROL [Concomitant]
     Indication: OSTEOPOROSIS
     Dosage: 0.25 UG, 2/D
     Route: 048
     Dates: end: 20100305
  3. AMLODIPINE [Concomitant]
     Indication: HYPERTENSION
     Dosage: 2.5 MG, DAILY (1/D)
     Route: 048
     Dates: end: 20100305
  4. MEILAX [Concomitant]
     Indication: INSOMNIA
     Dosage: 1 MG, DAILY (1/D)
     Route: 048
     Dates: end: 20100305
  5. LANSOPRAZOLE [Concomitant]
     Indication: REFLUX OESOPHAGITIS
     Dosage: 15 MG, DAILY (1/D)
     Route: 048
     Dates: end: 20100305
  6. MUCOSERUM [Concomitant]
     Indication: BRONCHITIS CHRONIC
     Dosage: 45 MG, DAILY (1/D)
     Route: 048
     Dates: end: 20100305
  7. LOXONIN [Concomitant]
     Indication: PAIN
     Dosage: 60 MG, 2/D
     Route: 048
     Dates: end: 20100209
  8. NITRODERM [Concomitant]
     Indication: ANGINA PECTORIS
     Dosage: UNK, DAILY (1/D)
     Route: 062
     Dates: end: 20100305
  9. MAGNESIUM OXIDE [Concomitant]
     Indication: CONSTIPATION
     Dosage: 330 MG, 2/D
     Route: 048
     Dates: end: 20100305

REACTIONS (4)
  - CALCULUS URETERIC [None]
  - PULMONARY EMBOLISM [None]
  - PYELONEPHRITIS [None]
  - VENOUS THROMBOSIS [None]
